FAERS Safety Report 25079859 (Version 1)
Quarter: 2025Q1

REPORT INFORMATION
  Report Type: Spontaneous
  Country: CN (occurrence: CN)
  Receive Date: 20250314
  Receipt Date: 20250314
  Transmission Date: 20250409
  Serious: Yes (Life-Threatening)
  Sender: BAYER HEALTHCARE PHARMACEUTICALS INC.
  Company Number: CN-BAYER-2025A035424

PATIENT
  Age: 66 Year
  Sex: Female
  Weight: 58 kg

DRUGS (1)
  1. ULTRAVIST [Suspect]
     Active Substance: IOPROMIDE
     Indication: Computerised tomogram
     Route: 041
     Dates: start: 20250302, end: 20250302

REACTIONS (5)
  - Blood pressure decreased [Recovering/Resolving]
  - Cough [Recovered/Resolved]
  - Erythema [Recovered/Resolved]
  - Abdominal discomfort [None]
  - Heart rate increased [Recovered/Resolved]

NARRATIVE: CASE EVENT DATE: 20250302
